FAERS Safety Report 18924978 (Version 1)
Quarter: 2021Q1

REPORT INFORMATION
  Report Type: Other
  Country: US (occurrence: US)
  Receive Date: 20210222
  Receipt Date: 20210222
  Transmission Date: 20210420
  Serious: Yes (Other)
  Sender: FDA-Public Use
  Company Number: US-JUBILANT CADISTA PHARMACEUTICALS-2021JUB00033

PATIENT
  Age: 76 Year
  Sex: Male
  Weight: 90.7 kg

DRUGS (7)
  1. GINKGO [Concomitant]
     Active Substance: GINKGO
  2. VALSARTAN. [Suspect]
     Active Substance: VALSARTAN
     Indication: HYPERTENSION
     Dosage: 160 MG, 1X/DAY
     Route: 048
     Dates: start: 202101, end: 202101
  3. UNSPECIFIED VITAMINS [Concomitant]
     Active Substance: VITAMINS
  4. VALSARTAN. [Suspect]
     Active Substance: VALSARTAN
     Dosage: 320 MG, 1X/DAY
     Route: 048
     Dates: start: 202101, end: 202101
  5. ATORVASTATIN [Concomitant]
     Active Substance: ATORVASTATIN
     Dosage: 10 MG, 1X/DAY
  6. UNSPECIFIED ^OVER THE COUNTER STUFF^ [Concomitant]
  7. DOFETILIDE. [Concomitant]
     Active Substance: DOFETILIDE

REACTIONS (6)
  - Blood pressure increased [Recovered/Resolved]
  - Product substitution issue [Not Recovered/Not Resolved]
  - Vertigo [Recovered/Resolved]
  - Drug ineffective [Recovered/Resolved]
  - Balance disorder [Recovered/Resolved]
  - Dizziness [Recovered/Resolved]

NARRATIVE: CASE EVENT DATE: 202101
